FAERS Safety Report 17725919 (Version 1)
Quarter: 2020Q2

REPORT INFORMATION
  Report Type: Spontaneous
  Country: ES (occurrence: ES)
  Receive Date: 20200429
  Receipt Date: 20200429
  Transmission Date: 20200714
  Serious: Yes (Other)
  Sender: FDA-Public Use
  Company Number: ES-GLAXOSMITHKLINE-ES2020GSK069506

PATIENT

DRUGS (18)
  1. ERYTHROMYCIN. [Suspect]
     Active Substance: ERYTHROMYCIN
     Dosage: UNK, BID
     Route: 064
  2. MUPIROCIN. [Suspect]
     Active Substance: MUPIROCIN
     Dosage: UNK UNK, BID
     Route: 064
  3. PERMETHRIN. [Suspect]
     Active Substance: PERMETHRIN
     Dosage: UNK UNK, BID
     Route: 064
  4. PREDNISONE. [Suspect]
     Active Substance: PREDNISONE
     Indication: INFLAMMATION
     Dosage: 30 MG PER DAY
     Route: 064
  5. PERMETHRIN. [Suspect]
     Active Substance: PERMETHRIN
     Indication: ROSACEA
     Dosage: UNK UNK, BID
     Route: 064
  6. PERMETHRIN. [Suspect]
     Active Substance: PERMETHRIN
     Dosage: UNK UNK, BID
     Route: 064
  7. ZINC OXIDE. [Suspect]
     Active Substance: ZINC OXIDE
     Indication: ROSACEA
     Dosage: UNK UNK, BID
     Route: 064
  8. ZINC OXIDE. [Suspect]
     Active Substance: ZINC OXIDE
     Dosage: UNK UNK, BID
     Route: 064
  9. PREDNISONE. [Suspect]
     Active Substance: PREDNISONE
     Dosage: 10 MG
     Route: 064
  10. ERYTHROMYCIN. [Suspect]
     Active Substance: ERYTHROMYCIN
     Indication: ROSACEA
     Dosage: 1 G, BID
     Route: 064
  11. METRONIDAZOLE. [Suspect]
     Active Substance: METRONIDAZOLE
     Indication: ROSACEA
     Dosage: UNK UNK, BID
     Route: 064
  12. PREDNISONE. [Suspect]
     Active Substance: PREDNISONE
     Dosage: 20 MG
     Route: 064
  13. MUPIROCIN. [Suspect]
     Active Substance: MUPIROCIN
     Indication: ROSACEA
     Dosage: UNK UNK, BID
     Route: 064
  14. METRONIDAZOLE. [Suspect]
     Active Substance: METRONIDAZOLE
     Indication: PAIN
     Dosage: 250 MG, BID
     Route: 064
  15. AMOXICILLIN + CLAVULANIC ACID [Suspect]
     Active Substance: AMOXICILLIN\CLAVULANIC ACID
     Indication: ROSACEA
     Dosage: EVERY 8 HOUR
     Route: 064
  16. MUPIROCIN. [Suspect]
     Active Substance: MUPIROCIN
     Dosage: UNK UNK, BID
     Route: 064
  17. PREDNISONE. [Suspect]
     Active Substance: PREDNISONE
     Dosage: 20 MG
     Route: 064
  18. AMOXICILLIN + CLAVULANIC ACID [Suspect]
     Active Substance: AMOXICILLIN\CLAVULANIC ACID
     Dosage: EVERY 8 HOUR
     Route: 064

REACTIONS (2)
  - Foetal growth restriction [Unknown]
  - Foetal exposure during pregnancy [Unknown]
